FAERS Safety Report 15451381 (Version 1)
Quarter: 2018Q3

REPORT INFORMATION
  Report Type: Spontaneous
  Country: US (occurrence: US)
  Receive Date: 20180927
  Receipt Date: 20180927
  Transmission Date: 20181010
  Serious: Yes (Other)
  Sender: FDA-Public Use
  Company Number: None

PATIENT
  Age: 68 Year
  Sex: Female
  Weight: 51.71 kg

DRUGS (25)
  1. LISINOPRIL. [Concomitant]
     Active Substance: LISINOPRIL
  2. PULMICORT TURBUHALER [Concomitant]
     Active Substance: BUDESONIDE
  3. TRIAMCINOLONE ACETONIDE. [Concomitant]
     Active Substance: TRIAMCINOLONE ACETONIDE
  4. CYCLOBENZAPRINE. [Concomitant]
     Active Substance: CYCLOBENZAPRINE
  5. FOLIC ACID. [Concomitant]
     Active Substance: FOLIC ACID
  6. WALPHED D 12 H [Concomitant]
  7. TRAMADOL. [Concomitant]
     Active Substance: TRAMADOL
  8. FAMOTIDINE. [Concomitant]
     Active Substance: FAMOTIDINE
  9. ASPIRIN. [Concomitant]
     Active Substance: ASPIRIN
  10. MUPIROCIN 2% OINTMENT [Concomitant]
     Active Substance: MUPIROCIN
  11. CETIRIZINE [Concomitant]
     Active Substance: CETIRIZINE HYDROCHLORIDE
  12. MONTELUKAST [Concomitant]
     Active Substance: MONTELUKAST SODIUM
  13. ALBUTEROL 0.083% [Concomitant]
  14. BENADRYL [Concomitant]
     Active Substance: DIPHENHYDRAMINE HYDROCHLORIDE
  15. ULTRA PROBIOTIC [Concomitant]
  16. VALERIAN [Concomitant]
     Active Substance: VALERIAN
  17. LYRICA LIQUID [Concomitant]
  18. HIZENTRA [Concomitant]
     Active Substance: HUMAN IMMUNOGLOBULIN G
  19. EPIPEN [Concomitant]
     Active Substance: EPINEPHRINE
  20. MULTIHANCE [Suspect]
     Active Substance: GADOBENATE DIMEGLUMINE
     Indication: RADICULOPATHY
     Dosage: ?          OTHER STRENGTH:529 MG/ML;?
     Route: 042
     Dates: start: 20180816, end: 20180816
  21. ALLERGY SHOT [Concomitant]
     Active Substance: UNSPECIFIED INGREDIENT
  22. GENTEAL SEVERE DRY EYE GEL [Concomitant]
  23. N?ACETYL?CYSTEINE [Concomitant]
  24. VITAMIN D3 [Concomitant]
     Active Substance: CHOLECALCIFEROL
  25. TINEACIDE 2% [Concomitant]

REACTIONS (6)
  - Chills [None]
  - Headache [None]
  - Procedural pain [None]
  - Contrast media allergy [None]
  - Chromaturia [None]
  - Flank pain [None]

NARRATIVE: CASE EVENT DATE: 20180816
